APPROVED DRUG PRODUCT: SUSTIVA
Active Ingredient: EFAVIRENZ
Strength: 100MG **Federal Register determination that product was not discontinued or withdrawn for safety or effectiveness reasons**
Dosage Form/Route: CAPSULE;ORAL
Application: N020972 | Product #002
Applicant: BRISTOL MYERS SQUIBB CO
Approved: Sep 17, 1998 | RLD: Yes | RS: No | Type: DISCN